FAERS Safety Report 14779213 (Version 4)
Quarter: 2018Q2

REPORT INFORMATION
  Report Type: Report from Study
  Country: ES (occurrence: ES)
  Receive Date: 20180419
  Receipt Date: 20180614
  Transmission Date: 20180711
  Serious: Yes (Hospitalization)
  Sender: FDA-Public Use
  Company Number: ES-PFIZER INC-2018155774

PATIENT
  Age: 67 Year
  Sex: Male
  Weight: 86.6 kg

DRUGS (8)
  1. ACETYLCYSTEINE. [Concomitant]
     Active Substance: ACETYLCYSTEINE
  2. ZALTRAP [Suspect]
     Active Substance: ZIV-AFLIBERCEPT
     Indication: COLORECTAL CANCER METASTATIC
     Dosage: 344 MG, CYCLIC
     Route: 041
     Dates: start: 20151105, end: 20151105
  3. SEGURIL [Concomitant]
     Active Substance: FUROSEMIDE
  4. IRINOTECAN HCL [Suspect]
     Active Substance: IRINOTECAN HYDROCHLORIDE
     Indication: COLORECTAL CANCER METASTATIC
     Dosage: 263 MG, CYCLIC
     Route: 041
     Dates: start: 20151105, end: 20151105
  5. NOLOTIL /00473101/ [Concomitant]
     Active Substance: METAMIZOLE\PROPOXYPHENE
  6. 5-FU /00098801/ [Suspect]
     Active Substance: FLUOROURACIL
     Dosage: 3510 MG, CYCLIC
     Route: 041
     Dates: start: 20151105
  7. LEUCOVORIN /00566701/ [Suspect]
     Active Substance: LEUCOVORIN
     Indication: COLORECTAL CANCER METASTATIC
     Dosage: 585 MG, CYCLIC
     Route: 041
     Dates: start: 20151105, end: 20151105
  8. 5-FU /00098801/ [Suspect]
     Active Substance: FLUOROURACIL
     Indication: COLORECTAL CANCER METASTATIC
     Dosage: 585 MG, CYCLIC
     Route: 040
     Dates: start: 20151105, end: 20151105

REACTIONS (5)
  - Condition aggravated [Recovered/Resolved]
  - Diarrhoea [Recovered/Resolved]
  - Necrotising fasciitis [Recovered/Resolved]
  - Ascites [Recovered/Resolved]
  - Renal impairment [Recovered/Resolved]

NARRATIVE: CASE EVENT DATE: 20151111
